FAERS Safety Report 5291680-X (Version None)
Quarter: 2007Q2

REPORT INFORMATION
  Report Type: 
  Country: None (occurrence: None)
  Receive Date: 20070410
  Receipt Date: 20070328
  Transmission Date: 20071010
  Serious: Yes (Other)
  Sender: FDA-Public Use
  Company Number: PHNU2007DE00952

PATIENT
  Age: 40 Year
  Sex: Female

DRUGS (3)
  1. TEGRETOL [Suspect]
     Indication: EPILEPSY
     Dosage: 1200 MG/D
     Route: 048
     Dates: start: 19980101, end: 20050101
  2. TEGRETOL [Suspect]
     Dosage: 900 MG/D
     Route: 048
     Dates: start: 20050101
  3. CLINOVIR [Suspect]
     Dates: start: 19990101

REACTIONS (6)
  - BENIGN RENAL NEOPLASM [None]
  - CHOLELITHIASIS [None]
  - CONVULSION [None]
  - DRUG INTERACTION [None]
  - LIVER FUNCTION TEST ABNORMAL [None]
  - THYROID NEOPLASM [None]
